FAERS Safety Report 16162706 (Version 1)
Quarter: 2019Q2

REPORT INFORMATION
  Report Type: Spontaneous
  Country: US (occurrence: US)
  Receive Date: 20190303
  Receipt Date: 20190303
  Transmission Date: 20190711
  Serious: No
  Sender: FDA-Public Use
  Company Number: None

PATIENT
  Age: 59 Year
  Sex: Male
  Weight: 91 kg

DRUGS (2)
  1. OXACILLIN [Suspect]
     Active Substance: OXACILLIN SODIUM
     Dosage: ?          OTHER FREQUENCY:UNKNOWN;?
     Route: 042
     Dates: start: 20181118, end: 20181123
  2. CEFAZOLIN [Suspect]
     Active Substance: CEFAZOLIN
     Indication: STAPHYLOCOCCAL SEPSIS
     Dosage: ?          OTHER FREQUENCY:UNKNOWN;?
     Route: 042
     Dates: start: 20181014, end: 20181118

REACTIONS (4)
  - Staphylococcal infection [None]
  - Acute kidney injury [None]
  - Tubulointerstitial nephritis [None]
  - Glomerulonephritis [None]

NARRATIVE: CASE EVENT DATE: 20181127
